FAERS Safety Report 25062272 (Version 1)
Quarter: 2025Q1

REPORT INFORMATION
  Report Type: Spontaneous
  Country: GB (occurrence: GB)
  Receive Date: 20250311
  Receipt Date: 20250311
  Transmission Date: 20250409
  Serious: Yes (Other)
  Sender: CELLTRION
  Company Number: None

PATIENT

DRUGS (7)
  1. YUFLYMA [Suspect]
     Active Substance: ADALIMUMAB-AATY
     Indication: Colitis ulcerative
     Dosage: 40 MG, EVERY 2 WEEKS
  2. YUFLYMA [Suspect]
     Active Substance: ADALIMUMAB-AATY
     Dosage: 40 MG, EVERY 2 WEEKS
  3. AMLODIPINE [Suspect]
     Active Substance: AMLODIPINE BESYLATE
     Indication: Product used for unknown indication
  4. MESALAMINE [Concomitant]
     Active Substance: MESALAMINE
  5. ATORVASTATIN [Concomitant]
     Active Substance: ATORVASTATIN
  6. TAMSULOSIN [Concomitant]
     Active Substance: TAMSULOSIN
  7. NEBIVOLOL [Concomitant]
     Active Substance: NEBIVOLOL

REACTIONS (2)
  - Joint swelling [Unknown]
  - Erythema [Unknown]
